FAERS Safety Report 9885865 (Version 2)
Quarter: 2014Q1

REPORT INFORMATION
  Report Type: Spontaneous
  Country: US (occurrence: US)
  Receive Date: 20140210
  Receipt Date: 20140210
  Transmission Date: 20141002
  Serious: Yes (Hospitalization)
  Sender: FDA-Public Use
  Company Number: US-GLAXOSMITHKLINE-A0790193A

PATIENT
  Age: 52 Year
  Sex: Male
  Weight: 108.2 kg

DRUGS (7)
  1. AVANDIA [Suspect]
     Indication: DIABETES MELLITUS
     Dosage: 8MG SINGLE DOSE
     Route: 048
     Dates: start: 200409, end: 2007
  2. AVANDARYL [Suspect]
     Indication: DIABETES MELLITUS
     Dosage: 4MG SINGLE DOSE
     Route: 048
     Dates: start: 200704, end: 200706
  3. JANUVIA [Concomitant]
  4. LANTUS [Concomitant]
  5. VYTORIN [Concomitant]
  6. PREVACID [Concomitant]
  7. GLYBURIDE [Concomitant]

REACTIONS (4)
  - Ischaemic stroke [Unknown]
  - Visual field defect [Unknown]
  - Complex partial seizures [Unknown]
  - Postictal paralysis [Unknown]
